FAERS Safety Report 8461988 (Version 5)
Quarter: 2014Q1

REPORT INFORMATION
  Report Type: Report from Study
  Country: CA (occurrence: CA)
  Receive Date: 20120315
  Receipt Date: 20140118
  Transmission Date: 20141002
  Serious: Yes (Other)
  Sender: FDA-Public Use
  Company Number: CA-ROCHE-1046861

PATIENT
  Sex: Female
  Weight: 90.7 kg

DRUGS (12)
  1. RITUXAN [Suspect]
     Indication: GRANULOMATOSIS WITH POLYANGIITIS
     Dosage: FOR 5 TIMES
     Route: 042
     Dates: start: 20101007, end: 201112
  2. RITUXAN [Suspect]
     Dosage: DAY 1 AND 15
     Route: 042
     Dates: start: 20110607, end: 20110621
  3. RITUXAN [Suspect]
     Route: 042
     Dates: start: 20120927
  4. DESMOPRESSIN [Concomitant]
     Indication: DIABETES INSIPIDUS
     Route: 065
  5. LORAZEPAM [Concomitant]
     Indication: ANXIETY
  6. HYDROMORPHONE [Concomitant]
     Indication: PAIN
  7. PREDNISONE [Concomitant]
     Indication: GRANULOMATOSIS WITH POLYANGIITIS
     Route: 048
  8. ACETAMINOPHEN [Concomitant]
     Indication: PREMEDICATION
     Route: 048
     Dates: start: 20110621, end: 20110621
  9. ACETAMINOPHEN [Concomitant]
     Route: 048
     Dates: start: 20101007
  10. METHYLPREDNISOLONE [Concomitant]
     Route: 042
     Dates: start: 20110621, end: 20110621
  11. METHYLPREDNISOLONE [Concomitant]
     Route: 042
     Dates: start: 20101007
  12. DIPHENHYDRAMINE HCL [Concomitant]
     Route: 048
     Dates: start: 20110621, end: 20110621

REACTIONS (3)
  - Cholelithiasis [Recovered/Resolved]
  - Hepatic enzyme increased [Recovered/Resolved]
  - Biliary dilatation [Unknown]
